FAERS Safety Report 6648544-6 (Version None)
Quarter: 2010Q1

REPORT INFORMATION
  Report Type: 
  Country: None (occurrence: None)
  Receive Date: 20100324
  Receipt Date: 20100317
  Transmission Date: 20100710
  Serious: Yes (Hospitalization, Other)
  Sender: FDA-Public Use
  Company Number: US-AMGEN-QUU373623

PATIENT
  Sex: Female
  Weight: 54.5 kg

DRUGS (1)
  1. ENBREL [Suspect]
     Indication: PSORIASIS
     Route: 058
     Dates: start: 20050510, end: 20090101

REACTIONS (3)
  - LARGE INTESTINE PERFORATION [None]
  - PROCEDURAL COMPLICATION [None]
  - PSORIASIS [None]
